FAERS Safety Report 10277700 (Version 1)
Quarter: 2014Q3

REPORT INFORMATION
  Report Type: Other
  Country: US (occurrence: US)
  Receive Date: 20140704
  Receipt Date: 20140704
  Transmission Date: 20150326
  Serious: No
  Sender: FDA-Public Use
  Company Number: US-LUPIN PHARMACEUTICALS INC.-E2B_00001967

PATIENT
  Age: 61 Year
  Sex: Female
  Weight: 61.74 kg

DRUGS (5)
  1. LEVETIRACETAM EXTENDED-RELEASE TABLETS 500 MG [Suspect]
     Active Substance: LEVETIRACETAM
     Dates: start: 201311, end: 2013
  2. VITAMIN D [Concomitant]
     Active Substance: CHOLECALCIFEROL
     Indication: ROUTINE HEALTH MAINTENANCE
  3. VITAMIN B12 [Concomitant]
     Active Substance: CYANOCOBALAMIN
     Indication: ROUTINE HEALTH MAINTENANCE
  4. LEVETIRACETAM EXTENDED-RELEASE TABLETS 500 MG [Suspect]
     Active Substance: LEVETIRACETAM
     Dates: start: 2013
  5. LEVETIRACETAM EXTENDED-RELEASE TABLETS 500 MG [Suspect]
     Active Substance: LEVETIRACETAM
     Indication: EPILEPSY
     Dates: start: 201309, end: 201311

REACTIONS (5)
  - Optic nerve disorder [Not Recovered/Not Resolved]
  - Therapeutic response changed [Unknown]
  - Headache [Recovered/Resolved]
  - Vision blurred [Not Recovered/Not Resolved]
  - Choking [Recovered/Resolved]

NARRATIVE: CASE EVENT DATE: 201309
